FAERS Safety Report 14769276 (Version 2)
Quarter: 2018Q2

REPORT INFORMATION
  Report Type: Not Available
  Country: US (occurrence: US)
  Receive Date: 20180417
  Receipt Date: 20180518
  Transmission Date: 20180711
  Serious: No
  Sender: FDA-Public Use
  Company Number: US-NEUROCRINE BIOSCIENCES INC.-2018NBI00432

PATIENT
  Age: 70 Year
  Sex: Female

DRUGS (7)
  1. CLONAZEPAM. [Concomitant]
     Active Substance: CLONAZEPAM
     Indication: ANXIETY
     Dosage: EVERY NIGHT
     Route: 048
     Dates: start: 2017, end: 2018
  2. CYANOCOBALAMIN. [Concomitant]
     Active Substance: CYANOCOBALAMIN
     Indication: HYPOVITAMINOSIS
     Route: 048
     Dates: start: 20171009
  3. INGREZZA [Suspect]
     Active Substance: VALBENAZINE
     Indication: TARDIVE DYSKINESIA
     Route: 048
     Dates: start: 20180112, end: 20180119
  4. INGREZZA [Suspect]
     Active Substance: VALBENAZINE
     Route: 048
     Dates: start: 20180120, end: 20180302
  5. OLANZAPINE. [Concomitant]
     Active Substance: OLANZAPINE
     Indication: AFFECTIVE DISORDER
     Dosage: EVERY AT NIGHT
     Route: 048
  6. SENNA/ DOCUSATE [Concomitant]
     Indication: CONSTIPATION
     Dosage: 8.6 MG/ 100 MG
     Route: 048
     Dates: start: 20170818
  7. METOPROLOL. [Concomitant]
     Active Substance: METOPROLOL
     Indication: HYPERTENSION
     Dates: start: 20170808

REACTIONS (15)
  - Musculoskeletal stiffness [Unknown]
  - Balance disorder [Unknown]
  - Asthenia [Unknown]
  - Fatigue [Unknown]
  - Dyspnoea [Unknown]
  - Heart rate increased [Unknown]
  - Drug ineffective [None]
  - Lethargy [Unknown]
  - Restlessness [Unknown]
  - Dry mouth [Recovered/Resolved]
  - Drooling [Unknown]
  - Somnolence [Unknown]
  - Vision blurred [Recovered/Resolved]
  - Breath odour [Recovered/Resolved]
  - Dizziness [Recovered/Resolved]

NARRATIVE: CASE EVENT DATE: 2018
